FAERS Safety Report 5564088-7 (Version None)
Quarter: 2007Q4

REPORT INFORMATION
  Report Type: 
  Country: None (occurrence: None)
  Receive Date: 20071217
  Receipt Date: 20071205
  Transmission Date: 20080405
  Serious: Yes (Hospitalization, Other)
  Sender: FDA-Public Use
  Company Number: BR-PFIZER INC-2007090056

PATIENT
  Sex: Male
  Weight: 58 kg

DRUGS (6)
  1. SILDENAFIL (PAH) [Suspect]
     Indication: CARDIOMYOPATHY
     Route: 048
  2. SILDENAFIL (PAH) [Suspect]
     Indication: PULMONARY HYPERTENSION
  3. ALDACTONE [Concomitant]
     Route: 048
  4. LASIX [Concomitant]
  5. COLCHICINE [Concomitant]
     Route: 048
  6. CAPOTEN [Concomitant]
     Route: 048

REACTIONS (8)
  - CARDIAC PACEMAKER INSERTION [None]
  - CHEST PAIN [None]
  - COUGH [None]
  - DYSPNOEA [None]
  - FATIGUE [None]
  - HELICOBACTER INFECTION [None]
  - PLEURAL EFFUSION [None]
  - SWELLING [None]
